FAERS Safety Report 20923352 (Version 4)
Quarter: 2022Q2

REPORT INFORMATION
  Report Type: Report from Study
  Country: FR (occurrence: None)
  Receive Date: 20220607
  Receipt Date: 20220624
  Transmission Date: 20220721
  Serious: Yes (Death, Hospitalization)
  Sender: FDA-Public Use
  Company Number: FR-ROCHE-3108642

PATIENT
  Age: 77 Year
  Sex: Male
  Weight: 77 kg

DRUGS (6)
  1. OBINUTUZUMAB [Suspect]
     Active Substance: OBINUTUZUMAB
     Indication: Follicular lymphoma
     Dosage: 1,000 MG INTRAVENOUSLY ON DAYS 1, 8, AND 15 OF CYCLE 1, THEN 1,000 MG ON DAY 1 OF CYCLES 2 TO 6, THE
     Route: 042
     Dates: start: 20201015, end: 20220530
  2. ZANUBRUTINIB [Suspect]
     Active Substance: ZANUBRUTINIB
     Indication: Follicular lymphoma
     Route: 048
     Dates: start: 20211015, end: 20220530
  3. BISOPROLOL FUMARATE [Concomitant]
     Active Substance: BISOPROLOL FUMARATE
     Indication: Arrhythmia
     Route: 048
     Dates: start: 20090106
  4. EPLERENONE [Concomitant]
     Active Substance: EPLERENONE
     Indication: Arrhythmia
     Route: 048
     Dates: start: 20090106
  5. GLICLAZIDE [Concomitant]
     Active Substance: GLICLAZIDE
     Indication: Diabetes mellitus
     Dates: start: 20200701
  6. METFORMIN [Concomitant]
     Active Substance: METFORMIN HYDROCHLORIDE
     Indication: Diabetes mellitus
     Route: 048
     Dates: start: 20211209

REACTIONS (2)
  - COVID-19 [Not Recovered/Not Resolved]
  - Mucormycosis [Fatal]

NARRATIVE: CASE EVENT DATE: 20220530
